FAERS Safety Report 7756376-0 (Version None)
Quarter: 2011Q3

REPORT INFORMATION
  Report Type: 
  Country: None (occurrence: None)
  Receive Date: 20110916
  Receipt Date: 20110912
  Transmission Date: 20111222
  Serious: Yes (Life-Threatening, Hospitalization)
  Sender: FDA-Public Use
  Company Number: NO-ROCHE-799224

PATIENT
  Sex: Female

DRUGS (1)
  1. XELODA [Suspect]
     Indication: COLORECTAL CANCER
     Route: 048
     Dates: start: 20110810, end: 20110820

REACTIONS (7)
  - MUCOSAL INFLAMMATION [None]
  - DIARRHOEA [None]
  - MULTI-ORGAN FAILURE [None]
  - SEPSIS [None]
  - NEUTROPENIA [None]
  - NAUSEA [None]
  - BLOOD PRESSURE DECREASED [None]
